FAERS Safety Report 7289352-5 (Version None)
Quarter: 2011Q1

REPORT INFORMATION
  Report Type: 
  Country: None (occurrence: None)
  Receive Date: 20110211
  Receipt Date: 20110203
  Transmission Date: 20110831
  Serious: Yes (Hospitalization)
  Sender: FDA-Public Use
  Company Number: US-US-EMD SERONO, INC.-7022852

PATIENT
  Sex: Female

DRUGS (1)
  1. REBIF [Suspect]
     Indication: MULTIPLE SCLEROSIS
     Route: 058
     Dates: start: 20100916

REACTIONS (16)
  - POLLAKIURIA [None]
  - INJECTION SITE ERYTHEMA [None]
  - INJECTION SITE HAEMATOMA [None]
  - CONSTIPATION [None]
  - DRUG INEFFECTIVE [None]
  - CRYING [None]
  - INJECTION SITE REACTION [None]
  - VITAMIN D DECREASED [None]
  - GAIT DISTURBANCE [None]
  - INJECTION SITE PAIN [None]
  - SNEEZING [None]
  - FATIGUE [None]
  - NERVOUS SYSTEM DISORDER [None]
  - URINARY INCONTINENCE [None]
  - FAECALOMA [None]
  - SKIN EXFOLIATION [None]
